FAERS Safety Report 6603450-8 (Version None)
Quarter: 2010Q1

REPORT INFORMATION
  Report Type: 
  Country: None (occurrence: None)
  Receive Date: 20100226
  Receipt Date: 20090601
  Transmission Date: 20100710
  Serious: No
  Sender: FDA-Public Use
  Company Number: A0789278A

PATIENT
  Age: 22 Year
  Sex: Female

DRUGS (2)
  1. VALTREX [Suspect]
     Indication: GENITAL HERPES
     Dates: start: 20090101
  2. PAXIL [Concomitant]
     Indication: ANXIETY

REACTIONS (3)
  - GENITAL HERPES [None]
  - HERPES VIRUS INFECTION [None]
  - TREATMENT NONCOMPLIANCE [None]
